FAERS Safety Report 22597929 (Version 4)
Quarter: 2024Q3

REPORT INFORMATION
  Report Type: Spontaneous
  Country: US (occurrence: US)
  Receive Date: 20230614
  Receipt Date: 20240910
  Transmission Date: 20241016
  Serious: Yes (Other)
  Sender: SANOFI AVENTIS
  Company Number: US-SA-SAC20230612000364

PATIENT
  Age: 58 Year
  Sex: Female

DRUGS (1)
  1. DUPIXENT [Suspect]
     Active Substance: DUPILUMAB
     Indication: Dermatitis atopic
     Dosage: 300 MG, QOW
     Route: 058
     Dates: start: 202303, end: 2023

REACTIONS (7)
  - Haemorrhage [Unknown]
  - Eczema [Unknown]
  - Pruritus [Unknown]
  - Skin ulcer [Unknown]
  - Contusion [Unknown]
  - Urinary tract infection [Unknown]
  - Cystitis [Unknown]

NARRATIVE: CASE EVENT DATE: 20230101
